FAERS Safety Report 12840642 (Version 5)
Quarter: 2017Q3

REPORT INFORMATION
  Report Type: Report from Study
  Country: US (occurrence: US)
  Receive Date: 20161012
  Receipt Date: 20170802
  Transmission Date: 20171127
  Serious: Yes (Hospitalization)
  Sender: FDA-Public Use
  Company Number: US-ACTELION-A-NJ2016-143546

PATIENT
  Age: 59 Year
  Sex: Female

DRUGS (2)
  1. REVATIO [Concomitant]
     Active Substance: SILDENAFIL CITRATE
  2. OPSUMIT [Suspect]
     Active Substance: MACITENTAN
     Indication: PULMONARY ARTERIAL HYPERTENSION
     Dosage: 10 MG, QD
     Route: 048
     Dates: start: 20140113

REACTIONS (11)
  - Respiratory failure [Unknown]
  - Chest pain [Unknown]
  - Hypotension [Unknown]
  - Ulcer haemorrhage [Unknown]
  - Pneumonia [Unknown]
  - Calcinosis [Unknown]
  - Presyncope [Unknown]
  - Perforated ulcer [Unknown]
  - Peripheral swelling [Unknown]
  - Dyspnoea [Unknown]
  - Impaired healing [Unknown]

NARRATIVE: CASE EVENT DATE: 20160922
